FAERS Safety Report 14337863 (Version 1)
Quarter: 2017Q4

REPORT INFORMATION
  Report Type: Spontaneous
  Country: US (occurrence: US)
  Receive Date: 20171228
  Receipt Date: 20171228
  Transmission Date: 20180321
  Serious: Yes (Other)
  Sender: FDA-Public Use
  Company Number: None

PATIENT
  Age: 64 Year
  Sex: Male
  Weight: 62.5 kg

DRUGS (1)
  1. DOXORUBICIN LIPOSOME [Suspect]
     Active Substance: DOXORUBICIN
     Indication: BREAST CANCER METASTATIC
     Dosage: 70MG EVERY 28 IV
     Route: 042
     Dates: start: 20170914, end: 20171109

REACTIONS (2)
  - Rash [None]
  - Rash erythematous [None]

NARRATIVE: CASE EVENT DATE: 20171111
